FAERS Safety Report 19462710 (Version 2)
Quarter: 2021Q3

REPORT INFORMATION
  Report Type: Spontaneous
  Country: JP (occurrence: JP)
  Receive Date: 20210625
  Receipt Date: 20210805
  Transmission Date: 20211014
  Serious: Yes (Hospitalization, Disabling, Other)
  Sender: FDA-Public Use
  Company Number: JP-JNJFOC-20210654940

PATIENT
  Age: 65 Year
  Sex: Female
  Weight: 73.1 kg

DRUGS (1)
  1. XARELTO [Suspect]
     Active Substance: RIVAROXABAN
     Indication: ATRIAL FIBRILLATION
     Dosage: UNK
     Route: 048
     Dates: start: 20161201, end: 20170416

REACTIONS (4)
  - Hemiplegia [Unknown]
  - Thalamus haemorrhage [Recovered/Resolved with Sequelae]
  - Cerebral ventricular rupture [Unknown]
  - Hydrocephalus [Unknown]

NARRATIVE: CASE EVENT DATE: 20170416
